FAERS Safety Report 16903064 (Version 1)
Quarter: 2019Q4

REPORT INFORMATION
  Report Type: Spontaneous
  Country: US (occurrence: US)
  Receive Date: 20191010
  Receipt Date: 20191010
  Transmission Date: 20200122
  Serious: Yes (Other)
  Sender: FDA-Public Use
  Company Number: US-NOVOPROD-688547

PATIENT
  Age: 74 Year
  Sex: Female

DRUGS (1)
  1. NOVOLOG [Suspect]
     Active Substance: INSULIN ASPART
     Indication: PRODUCT USED FOR UNKNOWN INDICATION
     Dosage: UNK
     Route: 058
     Dates: start: 2009

REACTIONS (5)
  - Diverticulitis [Not Recovered/Not Resolved]
  - Surgery [Unknown]
  - Colitis [Unknown]
  - Thyroid disorder [Unknown]
  - Stress [Unknown]

NARRATIVE: CASE EVENT DATE: 20150827
